FAERS Safety Report 8830758 (Version 1)
Quarter: 2012Q4

REPORT INFORMATION
  Report Type: 
  Country: DE (occurrence: DE)
  Receive Date: 20121008
  Receipt Date: 20121008
  Transmission Date: 20130627
  Serious: Yes (Hospitalization)
  Sender: FDA-Public Use
  Company Number: DE-PFIZER INC-2012243694

PATIENT
  Age: 49 Year
  Sex: Male
  Weight: 100 kg

DRUGS (4)
  1. GENOTROPIN [Suspect]
     Indication: GROWTH HORMONE DEFICIENCY
     Dosage: 0 mg, UNK
     Route: 058
     Dates: start: 20090906
  2. L-THYROXIN [Concomitant]
     Indication: BLOOD THYROID STIMULATING HORMONE DECREASED
     Dosage: UNK
     Dates: start: 20080422
  3. L-THYROXIN [Concomitant]
     Indication: PRIMARY HYPOTHYROIDISM
  4. HYDROCORTISONE [Concomitant]
     Indication: BLOOD CORTICOTROPHIN DECREASED
     Dosage: UNK
     Dates: start: 20080422

REACTIONS (1)
  - Arthropathy [Unknown]
